FAERS Safety Report 7994610-2 (Version None)
Quarter: 2011Q4

REPORT INFORMATION
  Report Type: 
  Country: None (occurrence: None)
  Receive Date: 20111220
  Receipt Date: 20111212
  Transmission Date: 20120403
  Serious: Yes (Hospitalization)
  Sender: FDA-Public Use
  Company Number: GR-US-EMD SERONO, INC.-7101342

PATIENT
  Sex: Female

DRUGS (2)
  1. THYROHORMONE [Concomitant]
     Indication: HYPOTHYROIDISM
     Route: 048
     Dates: start: 20060101
  2. REBIF [Suspect]
     Indication: MULTIPLE SCLEROSIS
     Dates: start: 20030101, end: 20101001

REACTIONS (2)
  - BREAST CANCER STAGE II [None]
  - METASTASES TO LYMPH NODES [None]
